FAERS Safety Report 9467574 (Version 1)
Quarter: 2013Q3

REPORT INFORMATION
  Report Type: Spontaneous
  Country: US (occurrence: US)
  Receive Date: 20130821
  Receipt Date: 20130821
  Transmission Date: 20140515
  Serious: No
  Sender: FDA-Public Use
  Company Number: US-MYLANLABS-2013S1016030

PATIENT
  Sex: Female

DRUGS (6)
  1. GABAPENTIN [Suspect]
     Indication: PAIN
     Dates: start: 201307
  2. SPIRIVA [Concomitant]
  3. ADVAIR [Concomitant]
  4. MONTELUKAST [Concomitant]
  5. CYMBALTA [Concomitant]
  6. CLONAZEPAM [Concomitant]

REACTIONS (3)
  - Somnolence [Not Recovered/Not Resolved]
  - Confusional state [Not Recovered/Not Resolved]
  - Asthenia [Not Recovered/Not Resolved]
